FAERS Safety Report 21610619 (Version 9)
Quarter: 2023Q1

REPORT INFORMATION
  Report Type: Spontaneous
  Country: DE (occurrence: DE)
  Receive Date: 20221117
  Receipt Date: 20230126
  Transmission Date: 20230418
  Serious: Yes (Other)
  Sender: FDA-Public Use
  Company Number: DE-TORRENT-00023145

PATIENT
  Age: 29 Year
  Sex: Male

DRUGS (58)
  1. MORPHINE SULFATE [Suspect]
     Active Substance: MORPHINE SULFATE
     Indication: Pain
     Dosage: ORAL OPIOID THERAPY/ 10 MG OF MORPHINE REQUIRED BETWEEN SIX AND EIGHT TIMES DAILY
     Route: 048
  2. MORPHINE SULFATE [Suspect]
     Active Substance: MORPHINE SULFATE
     Dosage: ORAL OPIOID THERAPY/ 10 MG OF MORPHINE REQUIRED BETWEEN SIX AND EIGHT TIMES DAILY
     Route: 048
  3. OXYCODONE HYDROCHLORIDE [Suspect]
     Active Substance: OXYCODONE HYDROCHLORIDE
     Indication: Analgesic therapy
     Dosage: ORAL OPIOID THERAPY WITH PROLONGED-RELEASE OXYCODONE (30-30-40 MG)
     Route: 048
  4. OXYCODONE HYDROCHLORIDE [Suspect]
     Active Substance: OXYCODONE HYDROCHLORIDE
     Indication: Pain
     Dosage: 100 UNK, Q8H100 MG, Q8H
     Route: 048
  5. OXYCODONE HYDROCHLORIDE [Suspect]
     Active Substance: OXYCODONE HYDROCHLORIDE
     Dosage: 30-30-40 MG
     Route: 048
  6. HYDROMORPHONE HYDROCHLORIDE [Suspect]
     Active Substance: HYDROMORPHONE HYDROCHLORIDE
     Indication: Analgesic therapy
     Dosage: 16 MG HYDROMORPHONE IN A 24-HOUR GALENIC/ EVERY 24 HOURS
     Route: 065
     Dates: start: 2017
  7. HYDROMORPHONE HYDROCHLORIDE [Suspect]
     Active Substance: HYDROMORPHONE HYDROCHLORIDE
     Indication: Pain
  8. PREGABALIN [Suspect]
     Active Substance: PREGABALIN
     Indication: Pain
     Dosage: 300 MG, QD
     Route: 065
  9. PREGABALIN [Suspect]
     Active Substance: PREGABALIN
     Indication: Analgesic therapy
     Dosage: 150 MG IN THE MORNING AND IN THE EVENING
     Route: 065
  10. PREGABALIN [Suspect]
     Active Substance: PREGABALIN
     Dosage: THREE TIMES A DAY; 50-50-150 MG (5 TIMES/ DAY)
     Route: 065
  11. PREGABALIN [Suspect]
     Active Substance: PREGABALIN
     Dosage: PREGABALIN THREE TIMES A DAY
     Route: 065
  12. PREGABALIN [Suspect]
     Active Substance: PREGABALIN
     Dosage: 50-50-150 MG PREGABALIN
     Route: 065
     Dates: start: 2019
  13. PREGABALIN [Suspect]
     Active Substance: PREGABALIN
     Dosage: 50 MG, 3X/DAY
     Route: 065
     Dates: start: 2019
  14. PREGABALIN [Suspect]
     Active Substance: PREGABALIN
     Dosage: 150 MG, QD (150 MG OF PREGABALIN IN THE MORNING AND IN THE EVENING)
     Route: 065
     Dates: start: 2019
  15. PREGABALIN [Suspect]
     Active Substance: PREGABALIN
     Dosage: 50 MG, QD (THREE TIMES A DAY; 50-50-150 MG)
     Route: 065
  16. PREGABALIN [Suspect]
     Active Substance: PREGABALIN
     Dosage: 150 MG, 2X/DAY
     Route: 065
  17. PREGABALIN [Suspect]
     Active Substance: PREGABALIN
     Dosage: 50 MG, 3X/DAY
     Route: 065
     Dates: start: 2019
  18. PREGABALIN [Suspect]
     Active Substance: PREGABALIN
     Dosage: 30 MG, QD
     Route: 065
  19. DRONABINOL [Suspect]
     Active Substance: DRONABINOL
     Indication: Pain
     Dosage: 2.5 MILLIGRAM PER GRAM, 5 TIMES PER DAY (2.5-2.5-7.5 MG)
     Route: 048
     Dates: start: 2020
  20. DRONABINOL [Suspect]
     Active Substance: DRONABINOL
     Dosage: 2.5 MG, QD (A DAILY DOSE OF 2.5-2.5-7.5 MG THC 10 ADMINISTERED)
     Route: 048
     Dates: start: 2022
  21. DRONABINOL [Suspect]
     Active Substance: DRONABINOL
     Dosage: 2.5 MG, QD (A DAILY DOSE OF 2.5-2.5-7.5 MG THC 10 ADMINISTERED)
     Route: 048
     Dates: start: 2022
  22. AMBROXOL [Suspect]
     Active Substance: AMBROXOL
     Indication: Pain
     Dosage: UNKNOWN
     Route: 065
  23. AMBROXOL [Suspect]
     Active Substance: AMBROXOL
     Indication: Arthralgia
     Dosage: UNK, (CREAM CONTAINING 20% AMBROXOL) CREAM CONTAINING 20% AMBROXOL
     Route: 065
     Dates: start: 2019
  24. AMBROXOL [Suspect]
     Active Substance: AMBROXOL
     Indication: Arthralgia
     Dosage: UNK, (CREAM CONTAINING 20% AMBROXOL) CREAM CONTAINING 20% AMBROXOL
     Route: 065
     Dates: end: 2019
  25. AMBROXOL [Suspect]
     Active Substance: AMBROXOL
     Dosage: UNK, (CREAM CONTAINING 20% AMBROXOL) CREAM CONTAINING 20% AMBROXOL
     Route: 065
     Dates: end: 2019
  26. AMBROXOL [Suspect]
     Active Substance: AMBROXOL
     Dosage: UNK, (CREAM CONTAINING 20% AMBROXOL) CREAM CONTAINING 20% AMBROXOL
     Route: 065
     Dates: end: 2019
  27. AMBROXOL [Suspect]
     Active Substance: AMBROXOL
     Dosage: UNK, (CREAM CONTAINING 20% AMBROXOL) CREAM CONTAINING 20% AMBROXOL
     Route: 065
     Dates: end: 2019
  28. AMBROXOL [Suspect]
     Active Substance: AMBROXOL
     Dosage: UNK, (CREAM CONTAINING 20% AMBROXOL) CREAM CONTAINING 20% AMBROXOL
     Route: 065
     Dates: end: 2019
  29. AMBROXOL [Suspect]
     Active Substance: AMBROXOL
     Dosage: UNK, (CREAM CONTAINING 20% AMBROXOL) CREAM CONTAINING 20% AMBROXOL
     Route: 065
     Dates: end: 2019
  30. AMBROXOL [Suspect]
     Active Substance: AMBROXOL
     Dosage: UNK, (CREAM CONTAINING 20% AMBROXOL) CREAM CONTAINING 20% AMBROXOL
     Route: 065
     Dates: end: 2019
  31. AMITRIPTYLINE [Suspect]
     Active Substance: AMITRIPTYLINE
     Indication: Analgesic therapy
     Dosage: 25 MG AMITRIPTYLINE AT NIGHT
     Route: 065
  32. AMITRIPTYLINE [Suspect]
     Active Substance: AMITRIPTYLINE
     Indication: Pain
  33. DICLOFENAC [Suspect]
     Active Substance: DICLOFENAC
     Indication: Bone pain
     Dosage: UNKNOWN
     Route: 065
  34. DICLOFENAC [Suspect]
     Active Substance: DICLOFENAC
     Indication: Pain
     Dosage: NON-STEROIDAL ANTI-INFLAMMATORY DRUG DICLOFENAC
     Route: 065
  35. DICLOFENAC [Suspect]
     Active Substance: DICLOFENAC
     Dosage: NON-STEROIDAL ANTI-INFLAMMATORY DRUG DICLOFENAC
     Route: 065
  36. DICLOFENAC [Suspect]
     Active Substance: DICLOFENAC
     Dosage: UNK
     Route: 065
  37. DICLOFENAC [Suspect]
     Active Substance: DICLOFENAC
     Dosage: UNK
     Route: 065
  38. DICLOFENAC [Suspect]
     Active Substance: DICLOFENAC
     Dosage: UNK
     Route: 065
  39. DICLOFENAC [Suspect]
     Active Substance: DICLOFENAC
     Dosage: UNK
     Route: 065
  40. DICLOFENAC [Suspect]
     Active Substance: DICLOFENAC
     Dosage: UNK
     Route: 065
  41. ZOLEDRONIC ACID [Suspect]
     Active Substance: ZOLEDRONIC ACID
     Indication: Analgesic therapy
     Dosage: ZOLEDRONIC ACID I.V. EVERY FOUR WEEKS
     Route: 042
  42. ZOLEDRONIC ACID [Suspect]
     Active Substance: ZOLEDRONIC ACID
     Indication: Pain
     Dosage: UNK
     Route: 042
     Dates: start: 2021
  43. ZOLEDRONIC ACID [Suspect]
     Active Substance: ZOLEDRONIC ACID
     Indication: Product used for unknown indication
     Dosage: UNK
     Route: 042
  44. ZOLEDRONIC ACID [Suspect]
     Active Substance: ZOLEDRONIC ACID
     Indication: Analgesic therapy
  45. LENALIDOMIDE [Suspect]
     Active Substance: LENALIDOMIDE
     Indication: Immunomodulatory therapy
     Dosage: UNK
     Route: 065
     Dates: start: 2021
  46. LENALIDOMIDE [Suspect]
     Active Substance: LENALIDOMIDE
     Dosage: 300 MG, QD
     Route: 065
  47. LENALIDOMIDE [Suspect]
     Active Substance: LENALIDOMIDE
     Dosage: 300 MG, QD
     Route: 065
     Dates: start: 2021
  48. IBUPROFEN [Suspect]
     Active Substance: IBUPROFEN
     Indication: Bone pain
     Dosage: UNKNOWN
     Route: 065
  49. IBUPROFEN [Suspect]
     Active Substance: IBUPROFEN
     Dosage: NON-STEROIDAL ANTI-INFLAMMATORY DRUG IBUPROFEN
     Route: 065
  50. IBUPROFEN [Suspect]
     Active Substance: IBUPROFEN
     Dosage: FROM : //2016 TO : WHENEVER AFFLICTED WITH BONE
     Route: 065
  51. IBUPROFEN [Suspect]
     Active Substance: IBUPROFEN
     Dosage: THERAPY WITH IBUPROFEN IN UNKNOWN DOSAGE WHENEVER AFFLICTED WITH BONE
     Route: 065
     Dates: start: 2016
  52. IBUPROFEN [Suspect]
     Active Substance: IBUPROFEN
     Dosage: UNK
     Route: 065
  53. IBUPROFEN [Suspect]
     Active Substance: IBUPROFEN
     Dosage: UNK
     Route: 065
  54. IBUPROFEN [Suspect]
     Active Substance: IBUPROFEN
     Dosage: UNK
     Route: 065
  55. IBUPROFEN [Suspect]
     Active Substance: IBUPROFEN
     Dosage: UNK
     Route: 065
  56. IBUPROFEN [Suspect]
     Active Substance: IBUPROFEN
     Dosage: UNK
     Route: 065
  57. VITAMIN D [Concomitant]
     Active Substance: VITAMIN D NOS
     Indication: Product used for unknown indication
     Dosage: 2,000 IU VITAMIN D PER DAY
     Route: 065
  58. VITAMIN D [Concomitant]
     Active Substance: VITAMIN D NOS
     Dosage: 2000 IU VITAMIN D PER DAY

REACTIONS (13)
  - Metastasis [Unknown]
  - Depression [Recovered/Resolved]
  - Sleep disorder [Recovered/Resolved]
  - Condition aggravated [Recovered/Resolved]
  - Decreased appetite [Recovered/Resolved]
  - Neoplasm progression [Not Recovered/Not Resolved]
  - Sleep disorder [Recovered/Resolved]
  - Decreased appetite [Recovered/Resolved]
  - Fatigue [Not Recovered/Not Resolved]
  - Drug ineffective [Recovering/Resolving]
  - Somnolence [Recovered/Resolved]
  - Fatigue [Unknown]
  - Poor quality sleep [Recovering/Resolving]

NARRATIVE: CASE EVENT DATE: 20170101
